FAERS Safety Report 24281284 (Version 1)
Quarter: 2024Q3

REPORT INFORMATION
  Report Type: Spontaneous
  Country: GB (occurrence: GB)
  Receive Date: 20240904
  Receipt Date: 20240904
  Transmission Date: 20241017
  Serious: Yes (Life-Threatening, Other)
  Sender: BAYER
  Company Number: None

PATIENT
  Age: 59 Year
  Sex: Female

DRUGS (1)
  1. CLARITIN [Suspect]
     Active Substance: LORATADINE
     Dosage: UNK
     Dates: end: 20240901

REACTIONS (2)
  - Suicidal ideation [Recovering/Resolving]
  - Anhedonia [Recovering/Resolving]

NARRATIVE: CASE EVENT DATE: 20240826
